FAERS Safety Report 4488594-1 (Version None)
Quarter: 2004Q4

REPORT INFORMATION
  Report Type: 
  Country: None (occurrence: None)
  Receive Date: 20041026
  Receipt Date: 20040922
  Transmission Date: 20050328
  Serious: Yes (Other)
  Sender: FDA-Public Use
  Company Number: USA040978295

PATIENT
  Age: 71 Year
  Sex: Male

DRUGS (6)
  1. CYMBALTA [Suspect]
     Indication: DEPRESSION
     Dosage: 30 MG DAY
     Dates: start: 20040801, end: 20040801
  2. EFFEXOR [Concomitant]
  3. GLUCOPHAGE [Concomitant]
  4. ACETAMINOPHEN  W/HYDROCODONE [Concomitant]
  5. NEXIUM [Concomitant]
  6. NEURONTIN [Concomitant]

REACTIONS (2)
  - BLOOD PRESSURE INCREASED [None]
  - CHEST PAIN [None]
